FAERS Safety Report 9516600 (Version 1)
Quarter: 2013Q1

REPORT INFORMATION
  Report Type: Spontaneous
  Country: US (occurrence: None)
  Receive Date: 20130305
  Receipt Date: 20130305
  Transmission Date: 20140127
  Serious: No
  Sender: FDA-Public Use
  Company Number: 163-21880-12011369

PATIENT
  Age: 83 Year
  Sex: Male

DRUGS (3)
  1. REVLIMID (LENALIDOMIDE) (25 MILLIGRAM, CAPSULES) [Suspect]
     Indication: PLASMA CELL MYELOMA
     Dosage: 25 MG, DAILY X 21 DAYS, PO
     Dates: start: 20110121
  2. ECOTRIN (ACETYLSALICYLIC ACID) [Concomitant]
  3. FENNEL OIL [Concomitant]

REACTIONS (1)
  - Thrombosis [None]
